FAERS Safety Report 16249949 (Version 1)
Quarter: 2019Q2

REPORT INFORMATION
  Report Type: Spontaneous
  Country: US (occurrence: US)
  Receive Date: 20190429
  Receipt Date: 20190429
  Transmission Date: 20190711
  Serious: No
  Sender: FDA-Public Use
  Company Number: US-009507513-1904USA005713

PATIENT
  Age: 18 Year
  Sex: Female
  Weight: 54.42 kg

DRUGS (2)
  1. NEXPLANON [Suspect]
     Active Substance: ETONOGESTREL
     Dosage: 1 ROD
     Route: 059
     Dates: start: 20160315
  2. NEXPLANON [Suspect]
     Active Substance: ETONOGESTREL
     Indication: CONTRACEPTION
     Dosage: 1 ROD, IN THE LEFT ARM
     Route: 059
     Dates: start: 201303, end: 20160314

REACTIONS (14)
  - Influenza like illness [Not Recovered/Not Resolved]
  - Pain in extremity [Not Recovered/Not Resolved]
  - Amenorrhoea [Not Recovered/Not Resolved]
  - Weight increased [Not Recovered/Not Resolved]
  - Incorrect product administration duration [Unknown]
  - Circumstance or information capable of leading to medication error [Unknown]
  - Surgery [Recovered/Resolved]
  - Dysmenorrhoea [Not Recovered/Not Resolved]
  - Implant site scar [Not Recovered/Not Resolved]
  - Device deployment issue [Recovered/Resolved]
  - Menorrhagia [Not Recovered/Not Resolved]
  - Complication associated with device [Recovered/Resolved]
  - Menstruation irregular [Not Recovered/Not Resolved]
  - Complication of device removal [Recovered/Resolved]

NARRATIVE: CASE EVENT DATE: 201303
